FAERS Safety Report 8099821-6 (Version None)
Quarter: 2012Q1

REPORT INFORMATION
  Report Type: 
  Country: None (occurrence: None)
  Receive Date: 20120129
  Receipt Date: 20111010
  Transmission Date: 20120608
  Serious: No
  Sender: FDA-Public Use
  Company Number: US-ABBOTT-11P-163-0862559-00

PATIENT
  Sex: Female
  Weight: 74.91 kg

DRUGS (2)
  1. PREDNISONE TAB [Concomitant]
     Indication: RHEUMATOID ARTHRITIS
  2. HUMIRA [Suspect]
     Indication: RHEUMATOID ARTHRITIS
     Route: 058
     Dates: start: 20110601

REACTIONS (4)
  - RHEUMATOID ARTHRITIS [None]
  - INCORRECT DOSE ADMINISTERED [None]
  - UNDERDOSE [None]
  - PAIN IN EXTREMITY [None]
